FAERS Safety Report 14079701 (Version 1)
Quarter: 2017Q4

REPORT INFORMATION
  Report Type: Spontaneous
  Country: CN (occurrence: CN)
  Receive Date: 20171012
  Receipt Date: 20171012
  Transmission Date: 20180321
  Serious: Yes (Other)
  Sender: FDA-Public Use
  Company Number: CN-PFIZER INC-2017436342

PATIENT
  Age: 56 Year
  Sex: Male

DRUGS (2)
  1. AI HENG [Suspect]
     Active Substance: OXALIPLATIN
     Indication: INTERVENTIONAL PROCEDURE
     Dosage: 100 MG, 1X/DAY
     Route: 013
     Dates: start: 20170804, end: 20170804
  2. PHARMORUBICIN [Suspect]
     Active Substance: EPIRUBICIN
     Indication: INTERVENTIONAL PROCEDURE
     Dosage: 30 MG, 1X/DAY
     Route: 013
     Dates: start: 20170804, end: 20170804

REACTIONS (2)
  - Blood bilirubin increased [Recovering/Resolving]
  - Acute hepatic failure [Recovering/Resolving]

NARRATIVE: CASE EVENT DATE: 20170808
